FAERS Safety Report 4475443-0 (Version None)
Quarter: 2004Q4

REPORT INFORMATION
  Report Type: 
  Country: None (occurrence: None)
  Receive Date: 20041015
  Receipt Date: 20040916
  Transmission Date: 20050328
  Serious: Yes (Congenital Anomaly)
  Sender: FDA-Public Use
  Company Number: FR-ROCHE-380757

PATIENT
  Sex: Female
  Weight: 2.7 kg

DRUGS (3)
  1. SAQUINAVIR [Suspect]
     Indication: HIV INFECTION
     Dates: start: 20040215, end: 20040511
  2. COMBIVIR [Suspect]
     Indication: HIV INFECTION
     Dates: start: 20040215, end: 20040511
  3. RITONAVIR [Suspect]
     Indication: HIV INFECTION
     Dates: start: 20040215, end: 20040511

REACTIONS (2)
  - DRUG EXPOSURE DURING PREGNANCY [None]
  - PATENT DUCTUS ARTERIOSUS [None]
